FAERS Safety Report 17350191 (Version 1)
Quarter: 2020Q1

REPORT INFORMATION
  Report Type: Spontaneous
  Country: US (occurrence: US)
  Receive Date: 20200130
  Receipt Date: 20200130
  Transmission Date: 20200409
  Serious: Yes (Other)
  Sender: FDA-Public Use
  Company Number: US-BAUSCH-BL-2020-002326

PATIENT
  Sex: Male

DRUGS (2)
  1. UCERIS [Suspect]
     Active Substance: BUDESONIDE
     Indication: COLITIS ULCERATIVE
     Dosage: TWICE DAILY
     Route: 065
  2. UCERIS [Suspect]
     Active Substance: BUDESONIDE
     Dosage: ONCE DAILY
     Route: 065

REACTIONS (3)
  - Colitis ulcerative [Not Recovered/Not Resolved]
  - Symptom recurrence [Not Recovered/Not Resolved]
  - Insurance issue [Unknown]
